FAERS Safety Report 17899929 (Version 1)
Quarter: 2020Q2

REPORT INFORMATION
  Report Type: Spontaneous
  Country: US (occurrence: US)
  Receive Date: 20200615
  Receipt Date: 20200615
  Transmission Date: 20200714
  Serious: Yes (Hospitalization)
  Sender: FDA-Public Use
  Company Number: None

PATIENT
  Sex: Male

DRUGS (19)
  1. LINSINOPRIL [Concomitant]
     Active Substance: LISINOPRIL
  2. METHLPHENID [Concomitant]
  3. FLUOXETINE [Concomitant]
     Active Substance: FLUOXETINE HYDROCHLORIDE
  4. KETOCONAZOLE. [Concomitant]
     Active Substance: KETOCONAZOLE
  5. LEVETIRACETA [Concomitant]
     Active Substance: LEVETIRACETAM
  6. AMLODIPINE [Concomitant]
     Active Substance: AMLODIPINE BESYLATE
  7. AMOX/K CLAV [Concomitant]
     Active Substance: AMOXICILLIN\CLAVULANATE POTASSIUM
  8. ELIQUIS [Concomitant]
     Active Substance: APIXABAN
  9. VIMPAT [Concomitant]
     Active Substance: LACOSAMIDE
  10. LORAZEPAM. [Concomitant]
     Active Substance: LORAZEPAM
  11. ATROVASTATIN [Concomitant]
     Active Substance: ATORVASTATIN CALCIUM
  12. KLOR-CON [Concomitant]
     Active Substance: POTASSIUM CHLORIDE
  13. TRIAMCINOLON [Concomitant]
  14. GLATIRAMER 40MG/ML [Suspect]
     Active Substance: GLATIRAMER
     Indication: MULTIPLE SCLEROSIS
     Route: 058
     Dates: start: 201902
  15. POT CL [Concomitant]
  16. EZETIMIBE. [Concomitant]
     Active Substance: EZETIMIBE
  17. DOXYCYC MONO [Concomitant]
     Active Substance: DOXYCYCLINE
  18. OXCARBAZEPIN [Concomitant]
     Active Substance: OXCARBAZEPINE
  19. CIPROFLOXACIN. [Concomitant]
     Active Substance: CIPROFLOXACIN

REACTIONS (1)
  - Hospitalisation [None]
